FAERS Safety Report 13287228 (Version 2)
Quarter: 2017Q4

REPORT INFORMATION
  Report Type: Spontaneous
  Country: US (occurrence: US)
  Receive Date: 20170302
  Receipt Date: 20171223
  Transmission Date: 20180320
  Serious: Yes (Life-Threatening, Hospitalization, Other)
  Sender: FDA-Public Use
  Company Number: US-SUN PHARMACEUTICAL INDUSTRIES LTD-2017US-134664

PATIENT
  Age: 16 Year
  Sex: Female

DRUGS (1)
  1. ASPIRIN. [Suspect]
     Active Substance: ASPIRIN
     Indication: PRODUCT USED FOR UNKNOWN INDICATION
     Route: 065

REACTIONS (12)
  - Pancreatitis [Recovered/Resolved]
  - Respiratory alkalosis [Recovering/Resolving]
  - Hypocalcaemia [Unknown]
  - Toxicity to various agents [Recovered/Resolved]
  - Pulmonary oedema [Recovered/Resolved]
  - Hypokalaemia [Unknown]
  - Hyponatraemia [Unknown]
  - Intentional overdose [Recovered/Resolved]
  - Pleural effusion [Unknown]
  - Coagulopathy [Recovered/Resolved]
  - Metabolic acidosis [Recovering/Resolving]
  - Azotaemia [Recovered/Resolved]
